FAERS Safety Report 8029305-2 (Version None)
Quarter: 2012Q1

REPORT INFORMATION
  Report Type: 
  Country: None (occurrence: None)
  Receive Date: 20120106
  Receipt Date: 20120102
  Transmission Date: 20120608
  Serious: Yes (Other)
  Sender: FDA-Public Use
  Company Number: GB-ABBOTT-12P-167-0889173-00

PATIENT

DRUGS (2)
  1. CLARITHROMYCIN [Suspect]
     Indication: PRODUCT USED FOR UNKNOWN INDICATION
  2. FLUOXETINE [Interacting]
     Indication: PRODUCT USED FOR UNKNOWN INDICATION

REACTIONS (3)
  - SEROTONIN SYNDROME [None]
  - DRUG INTERACTION [None]
  - DELIRIUM [None]
